FAERS Safety Report 13180350 (Version 4)
Quarter: 2017Q2

REPORT INFORMATION
  Report Type: Report from Study
  Country: CA (occurrence: CA)
  Receive Date: 20170202
  Receipt Date: 20170426
  Transmission Date: 20170830
  Serious: Yes (Hospitalization, Other)
  Sender: FDA-Public Use
  Company Number: CA-JNJFOC-20170128222

PATIENT
  Age: 26 Year
  Sex: Male
  Weight: 113 kg

DRUGS (2)
  1. REMICADE [Suspect]
     Active Substance: INFLIXIMAB
     Indication: CROHN^S DISEASE
     Dosage: 5MG/KG
     Route: 042
     Dates: start: 20151022
  2. REMICADE [Suspect]
     Active Substance: INFLIXIMAB
     Indication: CROHN^S DISEASE
     Route: 042
     Dates: start: 20170126

REACTIONS (6)
  - Inappropriate schedule of drug administration [Unknown]
  - Off label use [Unknown]
  - Cough [Recovering/Resolving]
  - Post procedural haemorrhage [Recovered/Resolved]
  - Product use issue [Unknown]
  - Ileectomy [Unknown]

NARRATIVE: CASE EVENT DATE: 20151022
